FAERS Safety Report 9179926 (Version 1)
Quarter: 2012Q4

REPORT INFORMATION
  Report Type: 
  Country: US (occurrence: US)
  Receive Date: 20121029
  Receipt Date: 20121029
  Transmission Date: 20130627
  Serious: Yes (Hospitalization)
  Sender: FDA-Public Use
  Company Number: US-B.I. PHARMACEUTICALS,INC./RIDGEFIELD-2012-BP-26591BP

PATIENT
  Age: 70 None
  Sex: Female
  Weight: 45 kg

DRUGS (13)
  1. SPIRIVA [Suspect]
     Indication: CHRONIC OBSTRUCTIVE PULMONARY DISEASE
     Dosage: 18 mcg
     Route: 055
     Dates: start: 201110
  2. SPIRIVA [Suspect]
     Dosage: 18 mcg
     Route: 048
     Dates: start: 20121025, end: 20121025
  3. PERCOCET [Concomitant]
     Indication: PAIN
     Route: 048
     Dates: start: 201110
  4. KADIAN ER [Concomitant]
     Indication: PAIN
     Dosage: 40 mg
     Route: 048
     Dates: start: 201201
  5. TRAMADOL HCL [Concomitant]
     Indication: PAIN
     Route: 048
     Dates: start: 201201
  6. TIZANIDINE HCL [Concomitant]
     Indication: MUSCLE RELAXANT THERAPY
     Dosage: 4 mg
     Route: 048
     Dates: start: 201201
  7. GABAPENTIN [Concomitant]
     Indication: PAIN
     Dosage: 800 mg
     Route: 048
     Dates: start: 201201
  8. PRISTIQ ER [Concomitant]
     Indication: DEPRESSION
     Dosage: 100 mg
     Route: 048
     Dates: start: 2009
  9. SINGULAIR [Concomitant]
     Indication: DYSPNOEA
     Dosage: 10 mg
     Route: 048
     Dates: start: 2011
  10. RANITIDINE [Concomitant]
     Indication: DYSPEPSIA
     Route: 048
     Dates: start: 2007
  11. LISINOPRIL [Concomitant]
     Indication: HYPERTENSION
     Dosage: 5 mg
     Route: 048
     Dates: start: 201204
  12. PROAIR HFA [Concomitant]
     Indication: CHRONIC OBSTRUCTIVE PULMONARY DISEASE
     Dosage: 4 puf
     Route: 055
     Dates: start: 201110
  13. ADVAIR [Concomitant]
     Indication: CHRONIC OBSTRUCTIVE PULMONARY DISEASE
     Dosage: 2 puf
     Route: 055
     Dates: start: 201110

REACTIONS (3)
  - Lymphoma [Unknown]
  - Postoperative abscess [Recovered/Resolved]
  - Incorrect route of drug administration [Recovered/Resolved]
